FAERS Safety Report 22192310 (Version 2)
Quarter: 2023Q4

REPORT INFORMATION
  Report Type: Spontaneous
  Country: US (occurrence: US)
  Receive Date: 20230410
  Receipt Date: 20231215
  Transmission Date: 20240109
  Serious: Yes (Hospitalization, Other)
  Sender: FDA-Public Use
  Company Number: US-PFIZER INC-PV202300025142

PATIENT
  Age: 79 Year
  Sex: Male
  Weight: 71.21 kg

DRUGS (2)
  1. VYNDAMAX [Suspect]
     Active Substance: TAFAMIDIS
     Indication: Amyloidosis
     Dosage: 61 MG, 1X/DAY
  2. VYNDAMAX [Suspect]
     Active Substance: TAFAMIDIS
     Indication: Cardiac failure congestive
     Dosage: 61MG ONCE DAILY
     Route: 048
     Dates: start: 2019

REACTIONS (5)
  - Fluid retention [Unknown]
  - Dehydration [Unknown]
  - Blood sodium decreased [Unknown]
  - Dementia [Unknown]
  - Product administration interrupted [Unknown]
